FAERS Safety Report 6425813-6 (Version None)
Quarter: 2009Q4

REPORT INFORMATION
  Report Type: 
  Country: None (occurrence: None)
  Receive Date: 20091103
  Receipt Date: 20081219
  Transmission Date: 20100525
  Serious: No
  Sender: FDA-Public Use
  Company Number: US-ABBOTT-08P-163-0487921-00

PATIENT
  Sex: Female
  Weight: 108.96 kg

DRUGS (1)
  1. BIAXIN [Suspect]
     Indication: TONSILLITIS
     Dosage: UNKNOWN
     Dates: start: 20010101, end: 20010101

REACTIONS (2)
  - MALAISE [None]
  - URTICARIA [None]
